FAERS Safety Report 11851776 (Version 1)
Quarter: 2015Q4

REPORT INFORMATION
  Report Type: Spontaneous
  Country: US (occurrence: US)
  Receive Date: 20151218
  Receipt Date: 20151218
  Transmission Date: 20160305
  Serious: Yes (Congenital Anomaly)
  Sender: FDA-Public Use
  Company Number: US-009507513-1512USA008040

PATIENT
  Age: 1 Day
  Sex: Male
  Weight: 2.48 kg

DRUGS (2)
  1. RALTEGRAVIR POTASSIUM [Suspect]
     Active Substance: RALTEGRAVIR POTASSIUM
     Dosage: TOTAL DAILY DOSE REPORTED AS: 800 (UNITS NOT PROVIDED)
     Route: 064
     Dates: start: 2014, end: 20141204
  2. EMTRICITABINE (+) TENOFOVIR DISOPROXIL FUMARATE [Suspect]
     Active Substance: EMTRICITABINE\TENOFOVIR DISOPROXIL
     Dosage: TOTAL DAILY DOSE REPORTED AS:  DF
     Route: 064
     Dates: start: 2014, end: 20141204

REACTIONS (3)
  - Tremor [Unknown]
  - Foetal exposure during pregnancy [Recovered/Resolved]
  - Nervous system disorder [Unknown]

NARRATIVE: CASE EVENT DATE: 2014
